FAERS Safety Report 7518036-0 (Version None)
Quarter: 2011Q2

REPORT INFORMATION
  Report Type: 
  Country: None (occurrence: None)
  Receive Date: 20110531
  Receipt Date: 20110531
  Transmission Date: 20111010
  Serious: No
  Sender: FDA-Public Use
  Company Number: None

PATIENT
  Age: 66 Year
  Sex: Female

DRUGS (1)
  1. PREDNISONE [Suspect]
     Dosage: 5MG 1QD PO
     Route: 048
     Dates: start: 20110427, end: 20110527

REACTIONS (3)
  - CONDITION AGGRAVATED [None]
  - ARTHRITIS [None]
  - PRODUCT SUBSTITUTION ISSUE [None]
